FAERS Safety Report 21802310 (Version 1)
Quarter: 2022Q4

REPORT INFORMATION
  Report Type: Report from Study
  Country: US (occurrence: US)
  Receive Date: 20221230
  Receipt Date: 20221230
  Transmission Date: 20230113
  Serious: No
  Sender: FDA-Public Use
  Company Number: US-ACORDA-ACO_173341_2022

PATIENT
  Age: 75 Year
  Sex: Female

DRUGS (7)
  1. INBRIJA [Suspect]
     Active Substance: LEVODOPA
     Indication: Parkinson^s disease
     Dosage: 2 CAPSULES (84 MILLIGRAMS), PRN, NOT TO EXCEED 5 DOSES A DAY
     Dates: start: 202205
  2. INBRIJA [Suspect]
     Active Substance: LEVODOPA
     Indication: On and off phenomenon
     Dosage: 2 CAPSULES (84 MILLIGRAMS), PRN, NOT TO EXCEED 5 DOSES A DAY
     Dates: start: 202205
  3. INBRIJA [Suspect]
     Active Substance: LEVODOPA
     Dosage: 2 CAPSULES (84 MILLIGRAMS), PRN, NOT TO EXCEED 5 DOSES A DAY
     Dates: start: 202205
  4. INBRIJA [Suspect]
     Active Substance: LEVODOPA
     Dosage: 2 CAPSULES (84 MILLIGRAMS), PRN, NOT TO EXCEED 5 DOSES A DAY
  5. INBRIJA [Suspect]
     Active Substance: LEVODOPA
     Dosage: 2 CAPSULES (84 MILLIGRAMS), PRN, NOT TO EXCEED 5 DOSES A DAY
  6. INBRIJA [Suspect]
     Active Substance: LEVODOPA
     Dosage: 2 CAPSULES (84 MILLIGRAMS), PRN, NOT TO EXCEED 5 DOSES A DAY
  7. CARBIDOPA\LEVODOPA [Concomitant]
     Active Substance: CARBIDOPA\LEVODOPA
     Indication: Product used for unknown indication
     Dosage: UNK, Q 6 HRS
     Route: 065

REACTIONS (7)
  - Device use issue [Unknown]
  - Inappropriate schedule of product administration [Unknown]
  - Hot flush [Not Recovered/Not Resolved]
  - Hyperhidrosis [Not Recovered/Not Resolved]
  - Cough [Not Recovered/Not Resolved]
  - Headache [Not Recovered/Not Resolved]
  - Sputum discoloured [Not Recovered/Not Resolved]

NARRATIVE: CASE EVENT DATE: 20220824
